FAERS Safety Report 19849404 (Version 1)
Quarter: 2021Q3

REPORT INFORMATION
  Report Type: Spontaneous
  Country: AU (occurrence: AU)
  Receive Date: 20210917
  Receipt Date: 20210917
  Transmission Date: 20211014
  Serious: Yes (Death, Other)
  Sender: FDA-Public Use
  Company Number: AU-PURDUE PHARMA-USA-2021-0283852

PATIENT
  Age: 79 Year
  Sex: Male

DRUGS (4)
  1. OXYCODONE HCL TABLETS (RHODES 91?490) [Suspect]
     Active Substance: OXYCODONE HYDROCHLORIDE
     Indication: PROCEDURAL PAIN
     Dosage: 20 MG, Q3H PRN
     Route: 048
     Dates: start: 2011
  2. TRAMADOL. [Suspect]
     Active Substance: TRAMADOL
     Indication: PROCEDURAL PAIN
     Dosage: 100 MG, PRN
     Route: 042
     Dates: start: 2011
  3. OXYCODONE HYDROCHLORIDE (SIMILAR TO NDA 22?272) [Suspect]
     Active Substance: OXYCODONE HYDROCHLORIDE
     Indication: PROCEDURAL PAIN
     Dosage: 20 MG, BID
     Route: 048
     Dates: start: 2011
  4. MORPHINE [Suspect]
     Active Substance: MORPHINE
     Indication: PROCEDURAL PAIN
     Dosage: 10 MG, DAILY
     Route: 030
     Dates: start: 2011

REACTIONS (4)
  - Myocardial ischaemia [Fatal]
  - Emphysema [Fatal]
  - Toxicity to various agents [Fatal]
  - Surgery [Fatal]

NARRATIVE: CASE EVENT DATE: 2011
